FAERS Safety Report 4996457-8 (Version None)
Quarter: 2006Q2

REPORT INFORMATION
  Report Type: 
  Country: None (occurrence: None)
  Receive Date: 20060509
  Receipt Date: 20060427
  Transmission Date: 20061013
  Serious: Yes (Hospitalization, Other)
  Sender: FDA-Public Use
  Company Number: PHBS2006US06337

PATIENT
  Age: 46 Year
  Sex: Male

DRUGS (10)
  1. CYCLOSPORINE [Suspect]
     Indication: LIVER TRANSPLANT
     Dosage: UNK, UNK
     Route: 065
     Dates: start: 19920101
  2. SULFAMETHOXAZOLE + TRIMETHOPRIM [Concomitant]
     Route: 065
  3. COLCHICINE [Concomitant]
  4. TRANDOLAPRIL [Concomitant]
  5. ATENOLOL [Concomitant]
  6. ALLOPURINOL [Concomitant]
  7. RANITIDINE [Concomitant]
  8. FLUOXETINE [Concomitant]
  9. BUPROPION [Concomitant]
  10. FUROSEMIDE [Concomitant]

REACTIONS (15)
  - ABDOMINAL PAIN [None]
  - CONTUSION [None]
  - HAEMOGLOBIN DECREASED [None]
  - HEADACHE [None]
  - HEPATIC CIRRHOSIS [None]
  - HEPATITIS C [None]
  - IDIOPATHIC THROMBOCYTOPENIC PURPURA [None]
  - INFLUENZA LIKE ILLNESS [None]
  - LIVER TRANSPLANT REJECTION [None]
  - PORTAL HYPERTENSION [None]
  - RENAL FAILURE CHRONIC [None]
  - SPLENOMEGALY [None]
  - THROMBOCYTOPENIA [None]
  - VIRAL INFECTION [None]
  - WHITE BLOOD CELL COUNT DECREASED [None]
